FAERS Safety Report 7820923-0 (Version None)
Quarter: 2011Q4

REPORT INFORMATION
  Report Type: 
  Country: None (occurrence: None)
  Receive Date: 20111018
  Receipt Date: 20091225
  Transmission Date: 20120403
  Serious: Yes (Hospitalization)
  Sender: FDA-Public Use
  Company Number: JP-GLAXOSMITHKLINE-B0621364A

PATIENT
  Sex: Female
  Weight: 36 kg

DRUGS (14)
  1. AMLODIPINE [Concomitant]
     Route: 048
  2. CEFAZOLIN SODIUM [Concomitant]
     Indication: DIARRHOEA
     Dosage: 2G PER DAY
     Route: 048
     Dates: start: 20090508, end: 20090514
  3. CINAL [Concomitant]
     Route: 048
  4. ROCEPHIN [Suspect]
     Indication: PNEUMONIA
     Dosage: 2G PER DAY
     Route: 042
     Dates: start: 20090525, end: 20090528
  5. JUVELA [Concomitant]
     Route: 048
  6. LANSOPRAZOLE [Concomitant]
     Indication: PROPHYLAXIS
     Route: 048
  7. LAMICTAL [Suspect]
     Dosage: 25MG PER DAY
     Route: 048
     Dates: start: 20090518, end: 20090525
  8. METHYCOOL [Concomitant]
     Route: 048
  9. DIOVAN [Concomitant]
     Route: 048
  10. LAMICTAL [Suspect]
     Indication: STATUS EPILEPTICUS
     Dosage: 25MG TWICE PER DAY
     Route: 048
     Dates: start: 20090424, end: 20090517
  11. METILDIGOXIN [Concomitant]
     Route: 048
  12. MEXITIL [Concomitant]
     Route: 048
  13. BANAN [Concomitant]
     Indication: UPPER RESPIRATORY TRACT INFLAMMATION
     Dosage: 100MG PER DAY
     Route: 048
     Dates: start: 20090523, end: 20090525
  14. LEVOTHYROXINE SODIUM [Concomitant]
     Route: 048

REACTIONS (4)
  - DRUG ERUPTION [None]
  - RASH [None]
  - PRURITUS [None]
  - C-REACTIVE PROTEIN INCREASED [None]
